FAERS Safety Report 19455193 (Version 2)
Quarter: 2021Q2

REPORT INFORMATION
  Report Type: Report from Study
  Country: US (occurrence: US)
  Receive Date: 20210623
  Receipt Date: 20210630
  Transmission Date: 20210717
  Serious: Yes (Other)
  Sender: FDA-Public Use
  Company Number: US-PFIZER INC-2021238310

PATIENT
  Age: 59 Year
  Sex: Male

DRUGS (2)
  1. SUTENT [Suspect]
     Active Substance: SUNITINIB MALATE
     Indication: RENAL CELL CARCINOMA
     Dosage: 50 MG, CYCLIC (SUTENT 50MG DAILY FOR 28 DAYS OF 42 DAY CYCLE)
     Route: 048
     Dates: start: 20210213, end: 202105
  2. SUTENT [Suspect]
     Active Substance: SUNITINIB MALATE
     Dosage: 37.5 MG, CYCLIC(DAILY FOR 28 DAYS OF 42 DAY CYCLE)
     Route: 048
     Dates: start: 20210512

REACTIONS (13)
  - Oesophageal ulcer [Unknown]
  - Diarrhoea [Not Recovered/Not Resolved]
  - Glossodynia [Unknown]
  - Hepatic enzyme increased [Recovering/Resolving]
  - Taste disorder [Not Recovered/Not Resolved]
  - Fatigue [Unknown]
  - Aspartate aminotransferase increased [Unknown]
  - Pain in extremity [Recovering/Resolving]
  - Alanine aminotransferase increased [Unknown]
  - Off label use [Unknown]
  - Blood thyroid stimulating hormone increased [Recovered/Resolved]
  - Tongue disorder [Not Recovered/Not Resolved]
  - Product dose omission in error [Unknown]

NARRATIVE: CASE EVENT DATE: 2021
